FAERS Safety Report 18523271 (Version 1)
Quarter: 2020Q4

REPORT INFORMATION
  Report Type: Report from Study
  Country: IT (occurrence: IT)
  Receive Date: 20201119
  Receipt Date: 20201119
  Transmission Date: 20210114
  Serious: Yes (Other)
  Sender: FDA-Public Use
  Company Number: IT-PFIZER INC-2020450188

PATIENT
  Age: 83 Year
  Sex: Female

DRUGS (1)
  1. TAVOR (LORAZEPAM) [Suspect]
     Active Substance: LORAZEPAM
     Dosage: 7 DF, SINGLE FREQ:{TOTAL}
     Route: 048
     Dates: start: 20200920, end: 20200921

REACTIONS (3)
  - Wrong product administered [Recovered/Resolved]
  - Bradyphrenia [Recovered/Resolved]
  - Sopor [Recovered/Resolved]

NARRATIVE: CASE EVENT DATE: 20200921
